FAERS Safety Report 19999225 (Version 2)
Quarter: 2021Q4

REPORT INFORMATION
  Report Type: Spontaneous
  Country: US (occurrence: US)
  Receive Date: 20211027
  Receipt Date: 20211028
  Transmission Date: 20220303
  Serious: No
  Sender: FDA-Public Use
  Company Number: US-GRANULES-US-2021GRASPO00525

PATIENT
  Sex: Female

DRUGS (1)
  1. CLOTRIMAZOLE [Suspect]
     Active Substance: CLOTRIMAZOLE
     Indication: Deafness
     Route: 001
     Dates: start: 20211014, end: 20211018

REACTIONS (3)
  - Product administered at inappropriate site [Recovered/Resolved with Sequelae]
  - Product physical consistency issue [Recovered/Resolved with Sequelae]
  - Product use in unapproved indication [Recovered/Resolved with Sequelae]

NARRATIVE: CASE EVENT DATE: 20211014
